FAERS Safety Report 4843872-9 (Version None)
Quarter: 2005Q4

REPORT INFORMATION
  Report Type: 
  Country: None (occurrence: None)
  Receive Date: 20051130
  Receipt Date: 20051130
  Transmission Date: 20060501
  Serious: No
  Sender: FDA-Public Use
  Company Number: None

PATIENT
  Age: 60 Year
  Sex: Male
  Weight: 94.3482 kg

DRUGS (1)
  1. ANTARA 130 MG [Suspect]
     Indication: DYSLIPIDAEMIA
     Dosage: 130 MG QD PO
     Route: 048
     Dates: start: 20050305

REACTIONS (1)
  - BLOOD CREATININE INCREASED [None]
